FAERS Safety Report 7803331 (Version 4)
Quarter: 2013Q4

REPORT INFORMATION
  Report Type: Spontaneous
  Country: US (occurrence: US)
  Receive Date: 20110208
  Receipt Date: 20131220
  Transmission Date: 20140711
  Serious: Yes (Other)
  Sender: FDA-Public Use
  Company Number: US-BAYER-2011-011709

PATIENT
  Age: 17 Year
  Sex: Female
  Weight: 113.38 kg

DRUGS (6)
  1. OCELLA [Suspect]
     Indication: PRODUCT USED FOR UNKNOWN INDICATION
     Dosage: UNK
     Dates: start: 200910, end: 201004
  2. TUSSIONEX [Concomitant]
     Dosage: UNK
  3. AZITHROMYCIN [Concomitant]
     Dosage: 250 MG, UNK
  4. ZITHROMAX [Concomitant]
     Dosage: 250 MG, UNK
  5. AMOXICILLIN [Concomitant]
     Dosage: 500 MG, UNK
  6. FLUTICASONE [Concomitant]
     Dosage: 50 MCG, UNK

REACTIONS (5)
  - Gallbladder disorder [None]
  - Pain [None]
  - Injury [None]
  - Abdominal pain upper [None]
  - Biliary dyskinesia [None]
